FAERS Safety Report 17282798 (Version 1)
Quarter: 2020Q1

REPORT INFORMATION
  Report Type: Spontaneous
  Country: US (occurrence: US)
  Receive Date: 20191230
  Receipt Date: 20191230
  Transmission Date: 20200409
  Serious: Yes (Hospitalization)
  Sender: FDA-Public Use
  Company Number: None

PATIENT
  Age: 50 Year
  Sex: Female
  Weight: 53.52 kg

DRUGS (2)
  1. RITUXAN [Suspect]
     Active Substance: RITUXIMAB
     Dosage: ?          OTHER FREQUENCY:Q4 WEEKS ;?
     Route: 058
     Dates: start: 20190313
  2. VENETOCLAX 400MG PO DAILY [Suspect]
     Active Substance: VENETOCLAX
     Route: 048
     Dates: start: 201903

REACTIONS (1)
  - Vomiting [None]

NARRATIVE: CASE EVENT DATE: 20191228
